FAERS Safety Report 13334515 (Version 1)
Quarter: 2017Q1

REPORT INFORMATION
  Report Type: Spontaneous
  Country: US (occurrence: US)
  Receive Date: 20170314
  Receipt Date: 20170314
  Transmission Date: 20170428
  Serious: No
  Sender: FDA-Public Use
  Company Number: US-JNJFOC-20170109327

PATIENT
  Age: 73 Year
  Sex: Male

DRUGS (1)
  1. IMBRUVICA [Suspect]
     Active Substance: IBRUTINIB
     Indication: MANTLE CELL LYMPHOMA
     Route: 048
     Dates: start: 20170105

REACTIONS (3)
  - Lung disorder [Not Recovered/Not Resolved]
  - Mental status changes [Not Recovered/Not Resolved]
  - Product difficult to swallow [Not Recovered/Not Resolved]

NARRATIVE: CASE EVENT DATE: 20170106
